FAERS Safety Report 4882094-2 (Version None)
Quarter: 2006Q1

REPORT INFORMATION
  Report Type: 
  Country: None (occurrence: None)
  Receive Date: 20060117
  Receipt Date: 20050714
  Transmission Date: 20060701
  Serious: Yes (Hospitalization)
  Sender: FDA-Public Use
  Company Number: US-MERCK-0507USA02094

PATIENT
  Age: 79 Year
  Sex: Female
  Weight: 56 kg

DRUGS (3)
  1. VIOXX [Suspect]
     Indication: ARTHRITIS
     Route: 048
     Dates: start: 20030217, end: 20041106
  2. VIOXX [Suspect]
     Indication: BURSITIS
     Route: 048
     Dates: start: 20030217, end: 20041106
  3. TYLENOL (CAPLET) [Concomitant]
     Route: 065

REACTIONS (21)
  - ACUTE MYOCARDIAL INFARCTION [None]
  - BACK DISORDER [None]
  - CATARACT [None]
  - CHEST PAIN [None]
  - CHOLECYSTECTOMY [None]
  - CORONARY ARTERY DISEASE [None]
  - DIARRHOEA [None]
  - DIVERTICULUM [None]
  - HYPERLIPIDAEMIA [None]
  - HYPERTENSION [None]
  - HYPOAESTHESIA [None]
  - HYPOTHYROIDISM [None]
  - LUMBAR SPINAL STENOSIS [None]
  - MUSCLE SPASMS [None]
  - OVARIAN MASS [None]
  - PELVIC PERITONEAL ADHESIONS [None]
  - POLLAKIURIA [None]
  - RENAL FAILURE CHRONIC [None]
  - RETROPERITONEAL HAEMORRHAGE [None]
  - RHINITIS ALLERGIC [None]
  - TENDON SHEATH INCISION [None]
